FAERS Safety Report 8774643 (Version 1)
Quarter: 2012Q4

REPORT INFORMATION
  Report Type: 
  Country: US (occurrence: US)
  Receive Date: 20120907
  Receipt Date: 20120907
  Transmission Date: 20130627
  Serious: No
  Sender: FDA-Public Use
  Company Number: US-009507513-1209USA001283

PATIENT

DRUGS (3)
  1. PEGINTRON [Suspect]
     Indication: HEPATITIS C
     Dosage: UNK
  2. RIBAVIRIN [Suspect]
  3. TELAPREVIR [Suspect]

REACTIONS (6)
  - Wound [Unknown]
  - Scratch [Unknown]
  - Pruritus [Not Recovered/Not Resolved]
  - Product quality issue [Unknown]
  - Drug dose omission [Unknown]
  - Drug dose omission [Unknown]
